FAERS Safety Report 15692019 (Version 1)
Quarter: 2018Q4

REPORT INFORMATION
  Report Type: Spontaneous
  Country: FR (occurrence: FR)
  Receive Date: 20181205
  Receipt Date: 20181205
  Transmission Date: 20190205
  Serious: Yes (Hospitalization, Other)
  Sender: FDA-Public Use
  Company Number: FR-SHIRE-FR201846523

PATIENT

DRUGS (1)
  1. FOSRENOL [Suspect]
     Active Substance: LANTHANUM CARBONATE
     Indication: HYPERPHOSPHATAEMIA
     Dosage: UNK, 3X A WEEK
     Route: 065
     Dates: start: 20180906

REACTIONS (6)
  - Somnolence [Unknown]
  - Skin exfoliation [Unknown]
  - Decubitus ulcer [Unknown]
  - Fatigue [Unknown]
  - Confusional state [Unknown]
  - Cerebrovascular accident [Unknown]

NARRATIVE: CASE EVENT DATE: 201810
